FAERS Safety Report 8026433-2 (Version None)
Quarter: 2012Q1

REPORT INFORMATION
  Report Type: 
  Country: None (occurrence: None)
  Receive Date: 20120105
  Receipt Date: 20111222
  Transmission Date: 20120608
  Serious: Yes (Hospitalization)
  Sender: FDA-Public Use
  Company Number: US-ARROW GEN-2011-22143

PATIENT
  Age: 16 Year
  Sex: Female

DRUGS (2)
  1. RISPERIDONE [Suspect]
     Indication: IMPULSIVE BEHAVIOUR
  2. RISPERIDONE [Suspect]
     Indication: MOOD SWINGS
     Dosage: 0.5 MG, BID

REACTIONS (2)
  - DEPRESSION [None]
  - PSYCHOTIC DISORDER [None]
